FAERS Safety Report 7875477-X (Version None)
Quarter: 2011Q4

REPORT INFORMATION
  Report Type: 
  Country: None (occurrence: None)
  Receive Date: 20111031
  Receipt Date: 20111025
  Transmission Date: 20120403
  Serious: Yes (Death)
  Sender: FDA-Public Use
  Company Number: PHHY2011RU95430

PATIENT
  Age: 76 Year
  Sex: Male

DRUGS (1)
  1. EXELON [Suspect]
     Route: 048

REACTIONS (4)
  - RESPIRATORY FAILURE [None]
  - PNEUMONIA [None]
  - PULMONARY OEDEMA [None]
  - CARDIAC FAILURE [None]
